FAERS Safety Report 5659508-3 (Version None)
Quarter: 2008Q1

REPORT INFORMATION
  Report Type: 
  Country: None (occurrence: None)
  Receive Date: 20080311
  Receipt Date: 20080303
  Transmission Date: 20080703
  Serious: Yes (Hospitalization)
  Sender: FDA-Public Use
  Company Number: PHHO2008FR02595

PATIENT
  Age: 9 Year
  Sex: Male
  Weight: 35 kg

DRUGS (10)
  1. ZOLEDRONIC ACID [Suspect]
     Indication: BONE SARCOMA
     Dosage: 1.8MG
     Route: 042
     Dates: start: 20080126, end: 20080203
  2. ZOLEDRONIC ACID [Suspect]
     Dosage: NO TREATMENT
     Dates: start: 20080204, end: 20080205
  3. ZOLEDRONIC ACID [Suspect]
     Route: 042
     Dates: start: 20080206
  4. METHOTREXATE [Concomitant]
  5. ALPHA [Concomitant]
  6. CALCIUM [Concomitant]
  7. ACETAMINOPHEN [Concomitant]
  8. FLUID/ELECTROLYTE REPLACEMENT THERAPY [Concomitant]
  9. PHOSPHORE [Concomitant]
  10. FOLINIC ACID [Concomitant]

REACTIONS (2)
  - HYPERCALCAEMIA [None]
  - HYPOCALCAEMIA [None]
